FAERS Safety Report 16231817 (Version 3)
Quarter: 2019Q4

REPORT INFORMATION
  Report Type: Spontaneous
  Country: CA (occurrence: CA)
  Receive Date: 20190424
  Receipt Date: 20191126
  Transmission Date: 20200122
  Serious: Yes (Death, Other)
  Sender: FDA-Public Use
  Company Number: CA-TEVA-2019-CA-1040930

PATIENT
  Age: 50 Year
  Sex: Male

DRUGS (4)
  1. FENTANYL CITRATE. [Suspect]
     Active Substance: FENTANYL CITRATE
     Indication: PRODUCT USED FOR UNKNOWN INDICATION
     Route: 065
  2. MORPHINE SULFATE. [Suspect]
     Active Substance: MORPHINE SULFATE
     Indication: DRUG DEPENDENCE
  3. MORPHINE SULFATE. [Suspect]
     Active Substance: MORPHINE SULFATE
     Indication: PRODUCT USED FOR UNKNOWN INDICATION
     Route: 065
  4. FENTANYL CITRATE. [Suspect]
     Active Substance: FENTANYL CITRATE
     Indication: DRUG DEPENDENCE

REACTIONS (4)
  - Product use in unapproved indication [Fatal]
  - Life support [Fatal]
  - Overdose [Fatal]
  - Drug dependence [Fatal]
